FAERS Safety Report 8894648 (Version 1)
Quarter: 2012Q4

REPORT INFORMATION
  Report Type: 
  Country: DE (occurrence: DE)
  Receive Date: 20121108
  Receipt Date: 20121108
  Transmission Date: 20130627
  Serious: Yes (Other)
  Sender: FDA-Public Use
  Company Number: DE-SANOFI-AVENTIS-2012SA081164

PATIENT

DRUGS (1)
  1. TAXOTERE [Suspect]
     Indication: CANCER
     Route: 041

REACTIONS (1)
  - Toxicity to various agents [Unknown]
